FAERS Safety Report 26065529 (Version 1)
Quarter: 2025Q4

REPORT INFORMATION
  Report Type: Report from Study
  Country: US (occurrence: US)
  Receive Date: 20251119
  Receipt Date: 20251119
  Transmission Date: 20260117
  Serious: Yes (Other)
  Sender: BAYER HEALTHCARE PHARMACEUTICALS INC.
  Company Number: US-BAYER-2025A153047

PATIENT
  Age: 66 Year
  Sex: Male

DRUGS (2)
  1. NUBEQA [Suspect]
     Active Substance: DAROLUTAMIDE
     Indication: Prostate cancer
     Dosage: 600 MG, BID
     Route: 048
  2. NUBEQA [Suspect]
     Active Substance: DAROLUTAMIDE
     Indication: Prostate cancer
     Dosage: 300 MG, BID
     Route: 048

REACTIONS (7)
  - Constipation [Recovering/Resolving]
  - Abdominal distension [Recovering/Resolving]
  - Weight increased [Recovering/Resolving]
  - Muscle fatigue [Recovering/Resolving]
  - Neuropathy peripheral [Recovering/Resolving]
  - Hot flush [Recovering/Resolving]
  - Paraesthesia [Recovering/Resolving]
